FAERS Safety Report 11044198 (Version 4)
Quarter: 2016Q3

REPORT INFORMATION
  Report Type: Spontaneous
  Country: SE (occurrence: SE)
  Receive Date: 20150417
  Receipt Date: 20160928
  Transmission Date: 20161109
  Serious: Yes (Death, Hospitalization, Other)
  Sender: FDA-Public Use
  Company Number: SE-GILEAD-2015-0149147

PATIENT
  Age: 62 Year
  Sex: Male

DRUGS (3)
  1. RIBAVIRIN. [Suspect]
     Active Substance: RIBAVIRIN
     Indication: PRODUCT USED FOR UNKNOWN INDICATION
     Dosage: 600 MG, BID
     Route: 048
     Dates: start: 20150204, end: 20150325
  2. OLYSIO [Suspect]
     Active Substance: SIMEPREVIR
     Indication: PRODUCT USED FOR UNKNOWN INDICATION
     Dosage: 150 MG, QD
     Route: 048
     Dates: start: 20150204, end: 20150325
  3. SOVALDI [Suspect]
     Active Substance: SOFOSBUVIR
     Indication: PRODUCT USED FOR UNKNOWN INDICATION
     Dosage: 400 MG, QD
     Route: 048
     Dates: start: 20150204, end: 20150325

REACTIONS (5)
  - Loss of consciousness [Not Recovered/Not Resolved]
  - Hepatic failure [Fatal]
  - Hyperbilirubinaemia [Not Recovered/Not Resolved]
  - Anuria [Not Recovered/Not Resolved]
  - Jaundice [Fatal]

NARRATIVE: CASE EVENT DATE: 201503
